FAERS Safety Report 6588330-9 (Version None)
Quarter: 2010Q1

REPORT INFORMATION
  Report Type: 
  Country: None (occurrence: None)
  Receive Date: 20100218
  Receipt Date: 20100208
  Transmission Date: 20100710
  Serious: Yes (Hospitalization)
  Sender: FDA-Public Use
  Company Number: US-BAYER-201011431BCC

PATIENT
  Age: 57 Year
  Sex: Male
  Weight: 84 kg

DRUGS (4)
  1. MILK OF MAGNESIA TAB [Suspect]
     Indication: DYSPEPSIA
     Dosage: TOOK 4 TABLESPOONS
     Route: 048
     Dates: start: 20100201, end: 20100201
  2. GLIPIZIDE [Concomitant]
  3. METFORMIN HYDROCHLORIDE [Concomitant]
  4. JANUVIA [Concomitant]

REACTIONS (5)
  - CHOLECYSTECTOMY [None]
  - CONSTIPATION [None]
  - PANCREATITIS [None]
  - RETCHING [None]
  - VOMITING [None]
